FAERS Safety Report 9553566 (Version 4)
Quarter: 2014Q1

REPORT INFORMATION
  Report Type: Not Available
  Country: FR (occurrence: FR)
  Receive Date: 20130925
  Receipt Date: 20140130
  Transmission Date: 20141002
  Serious: Yes (Death, Hospitalization)
  Sender: FDA-Public Use
  Company Number: FR-NAPPMUNDI-GBR-2013-0015762

PATIENT
  Age: 90 Year
  Sex: Male

DRUGS (17)
  1. OXYNORM, GELULE [Suspect]
     Indication: PRODUCT USED FOR UNKNOWN INDICATION
     Dosage: 1 DF, QID
     Route: 048
     Dates: start: 20130207, end: 20130225
  2. DEPAKINE /00228501/ [Suspect]
     Indication: PRODUCT USED FOR UNKNOWN INDICATION
     Dosage: 0.5 DF, BID
     Route: 048
     Dates: start: 20130220, end: 20130223
  3. CLAMOXYL (AMOXICILLIN) [Suspect]
     Indication: PRODUCT USED FOR UNKNOWN INDICATION
     Dosage: 1 DF, QID
     Dates: start: 20130204, end: 20130225
  4. DALACIN /00166002/ [Suspect]
     Indication: PRODUCT USED FOR UNKNOWN INDICATION
     Dosage: 300 MG, 2 DF, TID
     Route: 048
     Dates: start: 20130205, end: 20130225
  5. FUMAFER [Suspect]
     Indication: ANAEMIA
     Dosage: 1 DF, DAILY
     Dates: start: 20130204, end: 20130225
  6. ZOLPIDEM [Suspect]
     Indication: PRODUCT USED FOR UNKNOWN INDICATION
     Dosage: 1 DF, DAILY
     Dates: start: 20130204, end: 20130225
  7. XANAX [Concomitant]
     Dosage: .025 MG, UNK
     Dates: start: 20130211, end: 20130307
  8. CASODEX [Concomitant]
     Dosage: UNK
     Dates: end: 20130226
  9. LASILIX                            /00032601/ [Concomitant]
     Dosage: UNK
     Dates: end: 20130307
  10. CARDENSIEL [Concomitant]
     Dosage: UNK
     Dates: end: 20130226
  11. DIFFU K [Concomitant]
     Dosage: UNK
     Dates: end: 20130307
  12. LYRICA [Concomitant]
     Dosage: 25 MG, UNK
     Dates: end: 20130307
  13. INEXIUM                            /01479302/ [Concomitant]
     Dosage: UNK
     Dates: end: 20130307
  14. PREVISCAN                          /00261401/ [Concomitant]
     Dosage: 20 MG, UNK
     Dates: end: 20130226
  15. RISPERDAL [Concomitant]
     Dosage: UNK
     Dates: end: 20130307
  16. TARDYFERON [Concomitant]
     Dosage: UNK
     Dates: start: 20130204, end: 20130225
  17. JOSIR [Concomitant]
     Dosage: 0.4 MG, UNK
     Dates: end: 20130226

REACTIONS (3)
  - General physical health deterioration [Fatal]
  - Rash maculo-papular [Not Recovered/Not Resolved]
  - Loss of consciousness [Unknown]
